FAERS Safety Report 7604674-3 (Version None)
Quarter: 2011Q3

REPORT INFORMATION
  Report Type: 
  Country: None (occurrence: None)
  Receive Date: 20110712
  Receipt Date: 20110707
  Transmission Date: 20111222
  Serious: Yes (Death)
  Sender: FDA-Public Use
  Company Number: PHHY2011DK61579

PATIENT

DRUGS (2)
  1. AMLODIPINE [Suspect]
     Route: 048
  2. DILTIAZEM [Suspect]

REACTIONS (1)
  - TOXICITY TO VARIOUS AGENTS [None]
